FAERS Safety Report 16841290 (Version 2)
Quarter: 2019Q4

REPORT INFORMATION
  Report Type: Spontaneous
  Country: US (occurrence: US)
  Receive Date: 20190923
  Receipt Date: 20191104
  Transmission Date: 20200122
  Serious: Yes (Other)
  Sender: FDA-Public Use
  Company Number: US-NOVOPROD-685506

PATIENT
  Age: 56 Year
  Sex: Female

DRUGS (2)
  1. OZEMPIC [Suspect]
     Active Substance: SEMAGLUTIDE
     Indication: DIABETES MELLITUS
     Dosage: UNK
     Route: 058
  2. OZEMPIC [Suspect]
     Active Substance: SEMAGLUTIDE
     Indication: WEIGHT DECREASED

REACTIONS (5)
  - Retinopathy [Unknown]
  - Hepatomegaly [Unknown]
  - Blood cholesterol abnormal [Unknown]
  - Asthma [Unknown]
  - Hypertension [Unknown]
